FAERS Safety Report 9111061 (Version 1)
Quarter: 2013Q1

REPORT INFORMATION
  Report Type: Spontaneous
  Country: US (occurrence: US)
  Receive Date: 20130219
  Receipt Date: 20130219
  Transmission Date: 20140127
  Serious: No
  Sender: FDA-Public Use
  Company Number: US-BRISTOL-MYERS SQUIBB COMPANY-16946261

PATIENT
  Age: 70 Year
  Sex: Male
  Weight: 125 kg

DRUGS (1)
  1. ORENCIA FOR INJ [Suspect]
     Indication: RHEUMATOID ARTHRITIS
     Dosage: 125 MG/ML, SINCE 6 MONTHS?LAST INFU:07SEP2012
     Route: 058

REACTIONS (1)
  - Drug administration error [Unknown]
